FAERS Safety Report 5140099-0 (Version None)
Quarter: 2006Q4

REPORT INFORMATION
  Report Type: 
  Country: None (occurrence: None)
  Receive Date: 20061026
  Receipt Date: 20061026
  Transmission Date: 20070319
  Serious: No
  Sender: FDA-Public Use
  Company Number: None

PATIENT
  Sex: Female
  Weight: 97.0698 kg

DRUGS (1)
  1. LOESTRIN 24 [Suspect]
     Indication: DYSFUNCTIONAL UTERINE BLEEDING
     Dosage: 1 DAILY ORAL
     Route: 048
     Dates: start: 20060811, end: 20061020

REACTIONS (1)
  - METRORRHAGIA [None]
